FAERS Safety Report 6433465-4 (Version None)
Quarter: 2009Q4

REPORT INFORMATION
  Report Type: 
  Country: None (occurrence: None)
  Receive Date: 20091109
  Receipt Date: 20091029
  Transmission Date: 20100525
  Serious: Yes (Hospitalization)
  Sender: FDA-Public Use
  Company Number: US-WATSON-2009-09538

PATIENT
  Sex: Female
  Weight: 85.261 kg

DRUGS (5)
  1. FENTANYL-75 [Suspect]
     Indication: BACK PAIN
     Dosage: 75 MCG, SINGLE
     Route: 062
     Dates: start: 20090708, end: 20090710
  2. METOPROLOL [Concomitant]
     Indication: HYPERTENSION
     Dosage: 1T BID
     Route: 048
  3. AMARYL [Concomitant]
     Indication: DIABETES MELLITUS
     Dosage: 1T, DAILY
     Route: 048
  4. METFORMIN HCL [Concomitant]
     Indication: DIABETES MELLITUS
     Dosage: 1T, BID
     Route: 048
  5. PROZAC [Concomitant]
     Indication: DEPRESSION
     Dosage: 1C, DAILY
     Route: 048

REACTIONS (12)
  - ADRENAL DISORDER [None]
  - AMNESIA [None]
  - FATIGUE [None]
  - HALLUCINATION, VISUAL [None]
  - KIDNEY INFECTION [None]
  - MALAISE [None]
  - NERVE INJURY [None]
  - PYREXIA [None]
  - RENAL FAILURE [None]
  - SPEECH DISORDER [None]
  - URINARY INCONTINENCE [None]
  - URINARY TRACT INFECTION [None]
